FAERS Safety Report 16291544 (Version 2)
Quarter: 2019Q2

REPORT INFORMATION
  Report Type: Spontaneous
  Country: FR (occurrence: FR)
  Receive Date: 20190509
  Receipt Date: 20190515
  Transmission Date: 20190711
  Serious: Yes (Other)
  Sender: FDA-Public Use
  Company Number: FR-PFIZER INC-2019197499

PATIENT
  Age: 49 Year
  Sex: Female
  Weight: 76 kg

DRUGS (15)
  1. SPIRONOLACTONE. [Suspect]
     Active Substance: SPIRONOLACTONE
     Indication: HYPERTENSION
     Dosage: 50 MG, 1X/DAY (QD)
     Route: 048
     Dates: start: 2007
  2. DIAMICRON [Suspect]
     Active Substance: GLICLAZIDE
     Indication: DIABETES MELLITUS
     Dosage: 2 DF, 1X/DAY (QD)
     Route: 048
     Dates: start: 2016
  3. EUCREAS [Suspect]
     Active Substance: METFORMIN HYDROCHLORIDE\VILDAGLIPTIN
     Indication: DIABETES MELLITUS
     Dosage: 2 DF, 1X/DAY (QD)
     Route: 048
     Dates: start: 2016
  4. LEVOTHYROXINE SODIUM. [Suspect]
     Active Substance: LEVOTHYROXINE SODIUM
     Indication: HYPOTHYROIDISM
     Dosage: 1 DF, 1X/DAY (QD)
     Route: 048
     Dates: start: 2007
  5. LETROZOLE SANDOZ [Suspect]
     Active Substance: LETROZOLE
     Indication: BREAST CANCER
     Dosage: 1 DF, 1X/DAY (QD)
     Route: 048
     Dates: start: 20181207
  6. RABEPRAZOLE SODIUM. [Suspect]
     Active Substance: RABEPRAZOLE SODIUM
     Indication: GASTROINTESTINAL DISORDER PROPHYLAXIS
     Dosage: 10 MG, 1X/DAY (QD)
     Route: 048
     Dates: start: 2012
  7. ALLOPURINOL. [Suspect]
     Active Substance: ALLOPURINOL
     Dosage: 300 MG, 1X/DAY (QD)
     Route: 048
     Dates: start: 2007
  8. KARDEGIC [Suspect]
     Active Substance: ASPIRIN DL-LYSINE
     Indication: PROPHYLAXIS
     Dosage: 1 DF, 1X/DAY (QD)
     Route: 048
     Dates: start: 2007
  9. PROCORALAN [Suspect]
     Active Substance: IVABRADINE
     Indication: CARDIAC FAILURE
     Dosage: 2 DF, 1X/DAY (QD)
     Route: 048
     Dates: start: 2012
  10. RAMIPRIL. [Suspect]
     Active Substance: RAMIPRIL
     Indication: HYPERTENSION
     Dosage: 2.5 MG, 1X/DAY (QD)
     Route: 048
     Dates: start: 2007
  11. FUROSEMIDE. [Suspect]
     Active Substance: FUROSEMIDE
     Indication: HYPERTENSION
     Dosage: 40 MG, 1X/DAY (QD)
     Route: 048
     Dates: start: 2007
  12. NEBIVOLOL. [Suspect]
     Active Substance: NEBIVOLOL
     Indication: HYPERTENSION
     Dosage: 5 MG, 1X/DAY (QD)
     Route: 048
     Dates: start: 2007
  13. ENDOTELON [Suspect]
     Active Substance: HERBALS\VITIS VINIFERA LEAF
     Indication: PERIPHERAL VENOUS DISEASE
     Dosage: 2 DF, 1X/DAY (QD)
     Route: 048
     Dates: start: 2012
  14. HEMIGOXINE NATIVELLE [Suspect]
     Active Substance: DIGOXIN
     Indication: CARDIAC FAILURE
     Dosage: 1 DF, 1X/DAY (QD)
     Route: 048
     Dates: start: 2007
  15. METFORMIN [Suspect]
     Active Substance: METFORMIN HYDROCHLORIDE
     Indication: DIABETES MELLITUS
     Dosage: 1 G, 1X/DAY (QD)
     Route: 048
     Dates: start: 2012

REACTIONS (2)
  - Hot flush [Not Recovered/Not Resolved]
  - Memory impairment [Not Recovered/Not Resolved]

NARRATIVE: CASE EVENT DATE: 201901
